FAERS Safety Report 9462102 (Version 1)
Quarter: 2013Q3

REPORT INFORMATION
  Report Type: Spontaneous
  Country: IT (occurrence: IT)
  Receive Date: 20130816
  Receipt Date: 20130816
  Transmission Date: 20140515
  Serious: Yes (Other)
  Sender: FDA-Public Use
  Company Number: IT-ELI_LILLY_AND_COMPANY-IT201308002083

PATIENT
  Age: 79 Year
  Sex: Male

DRUGS (5)
  1. ZYPREXA [Suspect]
     Indication: BIPOLAR DISORDER
     Dosage: 10 MG, QD
     Route: 048
     Dates: start: 20130101, end: 20130728
  2. LORAZEPAM [Suspect]
     Indication: BIPOLAR DISORDER
     Dosage: 1 DF, QD
     Route: 048
     Dates: start: 20130101, end: 20130728
  3. TALOFEN [Suspect]
     Indication: BIPOLAR DISORDER
     Dosage: 25 GTT, QD
     Route: 048
     Dates: start: 20130101, end: 20130728
  4. HALCION [Suspect]
     Indication: BIPOLAR DISORDER
     Dosage: 1 DF, QD
     Route: 048
     Dates: start: 20130101, end: 20130728
  5. ISOSORBIDE DINITRATE [Concomitant]
     Dosage: 50 MG, QD
     Route: 048
     Dates: start: 20130101, end: 20130728

REACTIONS (2)
  - Pupils unequal [Recovered/Resolved]
  - Sopor [Recovered/Resolved]
